FAERS Safety Report 11543507 (Version 1)
Quarter: 2015Q3

REPORT INFORMATION
  Report Type: Spontaneous
  Country: AT (occurrence: AT)
  Receive Date: 20150923
  Receipt Date: 20150923
  Transmission Date: 20151125
  Serious: Yes (Life-Threatening)
  Sender: FDA-Public Use
  Company Number: AT-ABBVIE-15P-009-1469000-00

PATIENT
  Age: 26 Year
  Sex: Female

DRUGS (23)
  1. TEMESTA [Suspect]
     Active Substance: LORAZEPAM
     Route: 048
     Dates: start: 20050910, end: 20050910
  2. ZYPREXA [Suspect]
     Active Substance: OLANZAPINE
     Indication: PRODUCT USED FOR UNKNOWN INDICATION
     Route: 048
     Dates: start: 20050907, end: 20050907
  3. TEMESTA [Suspect]
     Active Substance: LORAZEPAM
     Route: 048
     Dates: start: 20050915, end: 20050916
  4. CISORDINOL ACUTARD [Suspect]
     Active Substance: ZUCLOPENTHIXOL ACETATE
     Route: 030
     Dates: start: 20050909, end: 20050909
  5. CISORDINOL ACUTARD [Suspect]
     Active Substance: ZUCLOPENTHIXOL ACETATE
     Route: 030
     Dates: start: 20050911, end: 20050911
  6. CISORDINOL ACUTARD [Suspect]
     Active Substance: ZUCLOPENTHIXOL ACETATE
     Route: 030
     Dates: start: 20050914, end: 20050914
  7. ASPIRIN. [Suspect]
     Active Substance: ASPIRIN
     Indication: PRODUCT USED FOR UNKNOWN INDICATION
     Route: 048
     Dates: start: 20050911, end: 20050913
  8. ZYPREXA [Suspect]
     Active Substance: OLANZAPINE
     Route: 048
     Dates: start: 20050908, end: 20050908
  9. TEMESTA [Suspect]
     Active Substance: LORAZEPAM
     Route: 048
     Dates: start: 20050913, end: 20050913
  10. TEMESTA [Suspect]
     Active Substance: LORAZEPAM
     Route: 048
     Dates: start: 20050917
  11. CISORDINOL ACUTARD [Suspect]
     Active Substance: ZUCLOPENTHIXOL ACETATE
     Indication: PRODUCT USED FOR UNKNOWN INDICATION
     Route: 030
     Dates: start: 20050908, end: 20050908
  12. ASPIRIN. [Suspect]
     Active Substance: ASPIRIN
     Route: 048
     Dates: start: 20050914, end: 20050916
  13. ASPIRIN. [Suspect]
     Active Substance: ASPIRIN
     Route: 048
     Dates: start: 20050919
  14. DEPAKINE [Suspect]
     Active Substance: VALPROATE SODIUM
     Indication: PRODUCT USED FOR UNKNOWN INDICATION
     Route: 048
     Dates: start: 20050912
  15. TEMESTA [Suspect]
     Active Substance: LORAZEPAM
     Route: 048
     Dates: start: 20050908, end: 20050908
  16. TEMESTA [Suspect]
     Active Substance: LORAZEPAM
     Route: 048
     Dates: start: 20050914, end: 20050914
  17. TEMESTA [Suspect]
     Active Substance: LORAZEPAM
     Indication: PRODUCT USED FOR UNKNOWN INDICATION
     Route: 048
     Dates: start: 20050907, end: 20050907
  18. TEMESTA [Suspect]
     Active Substance: LORAZEPAM
     Route: 048
     Dates: start: 20050912, end: 20050912
  19. ASPIRIN. [Suspect]
     Active Substance: ASPIRIN
     Route: 048
     Dates: start: 20050917, end: 20050918
  20. TEMESTA [Suspect]
     Active Substance: LORAZEPAM
     Route: 048
     Dates: start: 20050911, end: 20050911
  21. ZYPREXA [Suspect]
     Active Substance: OLANZAPINE
     Route: 048
     Dates: start: 20050913
  22. TEMESTA [Suspect]
     Active Substance: LORAZEPAM
     Route: 048
     Dates: start: 20050909, end: 20050909
  23. CISORDINOL ACUTARD [Suspect]
     Active Substance: ZUCLOPENTHIXOL ACETATE
     Route: 030
     Dates: start: 20050915, end: 20050915

REACTIONS (2)
  - Pulmonary embolism [Recovered/Resolved]
  - Sedation [Recovered/Resolved]

NARRATIVE: CASE EVENT DATE: 20050914
